FAERS Safety Report 11867031 (Version 2)
Quarter: 2016Q1

REPORT INFORMATION
  Report Type: Spontaneous
  Country: FR (occurrence: FR)
  Receive Date: 20151224
  Receipt Date: 20160105
  Transmission Date: 20160526
  Serious: Yes (Hospitalization, Other)
  Sender: FDA-Public Use
  Company Number: FR-PFIZER INC-2015462079

PATIENT
  Age: 68 Year
  Sex: Female

DRUGS (14)
  1. EUPANTOL [Suspect]
     Active Substance: PANTOPRAZOLE SODIUM
     Dosage: UNK
     Route: 048
     Dates: start: 20140813, end: 20140902
  2. BRISTOPEN [Suspect]
     Active Substance: OXACILLIN SODIUM
     Dosage: 12 G, DAILY
     Route: 042
     Dates: start: 20140808, end: 20140829
  3. DIAMICRON [Suspect]
     Active Substance: GLICLAZIDE
     Dosage: 60 MG, DAILY (1 DOSAGE FORM PER DAY)
     Route: 048
     Dates: start: 20140814, end: 20140815
  4. METFORMIN [Concomitant]
     Active Substance: METFORMIN HYDROCHLORIDE
     Dosage: UNK
  5. ZYMAD [Concomitant]
     Active Substance: CHOLECALCIFEROL
     Dosage: UNK
  6. OFLOCET /00731801/ [Suspect]
     Active Substance: OFLOXACIN
     Dosage: 400 MG, DAILY
     Route: 048
     Dates: start: 20140814, end: 20140817
  7. AZANTAC [Suspect]
     Active Substance: RANITIDINE HYDROCHLORIDE
     Dosage: UNK
     Route: 042
     Dates: start: 20140808, end: 20140810
  8. LASILIX [Suspect]
     Active Substance: FUROSEMIDE
     Dosage: 40 MG, DAILY
     Route: 048
     Dates: start: 20140813, end: 20140825
  9. GADOLINIUM [Suspect]
     Active Substance: GADOLINIUM
     Dosage: (2 DOSAGES FORM IN ONE SINGLE INTAKE)
     Route: 042
     Dates: start: 20140814, end: 20140821
  10. KARDEGIC [Concomitant]
     Active Substance: ASPIRIN LYSINE
     Dosage: UNK
  11. GENTAMICIN. [Concomitant]
     Active Substance: GENTAMICIN
     Dosage: UNK
     Dates: start: 20140819, end: 20140826
  12. PANCRELASE [Concomitant]
     Dosage: UNK
  13. EUPANTOL [Suspect]
     Active Substance: PANTOPRAZOLE SODIUM
     Dosage: UNK
     Route: 042
     Dates: start: 20140811, end: 20140813
  14. LEVOTHYROX [Concomitant]
     Active Substance: LEVOTHYROXINE
     Dosage: UNK

REACTIONS (3)
  - Eosinophilia [Recovering/Resolving]
  - Renal failure [Recovering/Resolving]
  - Urticaria [Recovering/Resolving]

NARRATIVE: CASE EVENT DATE: 2014
